FAERS Safety Report 9183779 (Version 1)
Quarter: 2013Q1

REPORT INFORMATION
  Report Type: Spontaneous
  Country: US (occurrence: US)
  Receive Date: 20130322
  Receipt Date: 20130322
  Transmission Date: 20140127
  Serious: Yes (Hospitalization)
  Sender: FDA-Public Use
  Company Number: US-PFIZER INC-HQWYE759822JUN07

PATIENT
  Age: 51 Year
  Sex: Female
  Weight: 86.2 kg

DRUGS (11)
  1. TYGACIL [Suspect]
     Indication: STAPHYLOCOCCAL INFECTION
     Dosage: 50 MG, 1X/12 HR
     Route: 042
     Dates: start: 20070615, end: 20070620
  2. TYGACIL [Suspect]
     Indication: KNEE OPERATION
  3. LIPITOR [Concomitant]
     Dosage: UNK
     Route: 048
  4. FENTANYL [Concomitant]
     Route: 065
  5. NEURONTIN [Concomitant]
     Route: 048
  6. HYDROCHLOROTHIAZIDE/TRIAMTERENE [Concomitant]
     Route: 048
  7. VICODIN [Concomitant]
     Route: 048
  8. SYNTHROID [Concomitant]
     Route: 048
  9. ATIVAN [Concomitant]
  10. COZAAR [Concomitant]
     Route: 048
  11. OXYCONTIN [Concomitant]
     Route: 048

REACTIONS (1)
  - Pancreatitis acute [Recovered/Resolved]
